FAERS Safety Report 13704470 (Version 1)
Quarter: 2017Q2

REPORT INFORMATION
  Report Type: Spontaneous
  Country: US (occurrence: US)
  Receive Date: 20170629
  Receipt Date: 20170629
  Transmission Date: 20170830
  Serious: Yes (Death, Congenital Anomaly)
  Sender: FDA-Public Use
  Company Number: None

PATIENT
  Age: 32 Year
  Sex: Female
  Weight: 74.25 kg

DRUGS (3)
  1. GLUCOSE [Concomitant]
     Active Substance: DEXTROSE
  2. PRENATAL VITAMINS [Concomitant]
     Active Substance: VITAMINS
  3. CYTOTEC [Suspect]
     Active Substance: MISOPROSTOL
     Indication: PREGNANCY
     Dates: start: 20170201, end: 20170202

REACTIONS (3)
  - Brain injury [None]
  - Death of relative [None]
  - Maternal exposure timing unspecified [None]

NARRATIVE: CASE EVENT DATE: 20170202
